FAERS Safety Report 18899667 (Version 1)
Quarter: 2021Q1

REPORT INFORMATION
  Report Type: Report from Study
  Country: US (occurrence: US)
  Receive Date: 20210216
  Receipt Date: 20210216
  Transmission Date: 20210420
  Serious: Yes (Death)
  Sender: FDA-Public Use
  Company Number: US-PFIZER INC-2021148635

PATIENT

DRUGS (4)
  1. FLAVOPIRIDOL [Suspect]
     Active Substance: ALVOCIDIB
     Indication: ACUTE LEUKAEMIA
     Dosage: 30 MG/M2
     Route: 040
  2. FLAVOPIRIDOL [Suspect]
     Active Substance: ALVOCIDIB
     Dosage: 60 MG/M2
     Route: 042
  3. CYTARABINE. [Suspect]
     Active Substance: CYTARABINE
     Indication: ACUTE LEUKAEMIA
     Dosage: UNK
  4. MITOXANTRONE HCL [Suspect]
     Active Substance: MITOXANTRONE HYDROCHLORIDE
     Indication: ACUTE LEUKAEMIA
     Dosage: UNK

REACTIONS (1)
  - Death [Fatal]
